FAERS Safety Report 22698181 (Version 4)
Quarter: 2024Q1

REPORT INFORMATION
  Report Type: Spontaneous
  Country: US (occurrence: US)
  Receive Date: 20230712
  Receipt Date: 20240125
  Transmission Date: 20240410
  Serious: Yes (Disabling, Other)
  Sender: FDA-Public Use
  Company Number: US-PFIZER INC-202101134721

PATIENT
  Age: 77 Year
  Sex: Female
  Weight: 48.99 kg

DRUGS (1)
  1. VYNDAMAX [Suspect]
     Active Substance: TAFAMIDIS
     Indication: Amyloidosis
     Dosage: 61 MG, 1X/DAY
     Route: 048

REACTIONS (4)
  - Blindness [Unknown]
  - Pain in extremity [Unknown]
  - Malaise [Unknown]
  - Nasopharyngitis [Unknown]
